FAERS Safety Report 5759618-6 (Version None)
Quarter: 2008Q2

REPORT INFORMATION
  Report Type: 
  Country: None (occurrence: None)
  Receive Date: 20080605
  Receipt Date: 20080528
  Transmission Date: 20081010
  Serious: Yes (Other)
  Sender: FDA-Public Use
  Company Number: US-JNJFOC-20070901274

PATIENT
  Sex: Female
  Weight: 65.77 kg

DRUGS (7)
  1. TOPAMAX [Suspect]
     Route: 048
  2. TOPAMAX [Suspect]
     Indication: MIGRAINE PROPHYLAXIS
     Route: 048
  3. PRAVACHOL [Suspect]
     Indication: DRUG USE FOR UNKNOWN INDICATION
  4. SOMA [Concomitant]
     Indication: BACK PAIN
  5. HYDROCODONE BITARTRATE AND ACETAMINOPHEN [Concomitant]
     Indication: BACK PAIN
  6. ASPIRIN [Concomitant]
  7. RELAFEN [Concomitant]

REACTIONS (5)
  - DIZZINESS [None]
  - GASTROINTESTINAL DISORDER [None]
  - LIVER FUNCTION TEST ABNORMAL [None]
  - ULCER HAEMORRHAGE [None]
  - WEIGHT DECREASED [None]
